FAERS Safety Report 5233332-8 (Version None)
Quarter: 2007Q1

REPORT INFORMATION
  Report Type: 
  Country: None (occurrence: None)
  Receive Date: 20070206
  Receipt Date: 20070124
  Transmission Date: 20070707
  Serious: Yes (Death)
  Sender: FDA-Public Use
  Company Number: 2006BI018979

PATIENT
  Age: 46 Year
  Sex: Female

DRUGS (14)
  1. AVONEX [Suspect]
     Indication: MULTIPLE SCLEROSIS
     Dosage: IM
     Route: 030
     Dates: start: 20000101
  2. AVONEX [Suspect]
     Indication: MULTIPLE SCLEROSIS
     Dosage: IM
     Route: 030
     Dates: start: 20041219, end: 20060922
  3. BACLOFEN [Concomitant]
  4. LAMICTAL [Concomitant]
  5. LYRICA [Concomitant]
  6. OXYCONTIN [Concomitant]
  7. ZYPREXA [Concomitant]
  8. TIZANDINE [Concomitant]
  9. PREMARIN [Concomitant]
  10. CLARINEX [Concomitant]
  11. ESTRADIOL [Concomitant]
  12. TRILEPTAL [Concomitant]
  13. TEMAZEPAM [Concomitant]
  14. AMITRIPTYLINE HCL [Concomitant]

REACTIONS (1)
  - MYOCARDIAL INFARCTION [None]
